FAERS Safety Report 8268094-3 (Version None)
Quarter: 2012Q2

REPORT INFORMATION
  Report Type: 
  Country: None (occurrence: None)
  Receive Date: 20120409
  Receipt Date: 20120330
  Transmission Date: 20120825
  Serious: Yes (Other)
  Sender: FDA-Public Use
  Company Number: US-ASTRAZENECA-2012SE21643

PATIENT
  Age: 63 Year
  Sex: Male

DRUGS (2)
  1. ZOLADEX [Suspect]
     Route: 058
  2. ANTI-INFLAMMATORIES [Concomitant]
     Indication: BACK PAIN

REACTIONS (6)
  - BACK PAIN [None]
  - PROSTATE CANCER METASTATIC [None]
  - FATIGUE [None]
  - DEPRESSION [None]
  - MOOD SWINGS [None]
  - PROSTATIC SPECIFIC ANTIGEN INCREASED [None]
